FAERS Safety Report 6845170-0 (Version None)
Quarter: 2010Q3

REPORT INFORMATION
  Report Type: 
  Country: None (occurrence: None)
  Receive Date: 20100715
  Receipt Date: 20070811
  Transmission Date: 20110219
  Serious: Yes (Other)
  Sender: FDA-Public Use
  Company Number: US-PFIZER INC-2007068622

PATIENT
  Sex: Female
  Weight: 55.8 kg

DRUGS (1)
  1. CHANTIX [Suspect]
     Indication: EX-TOBACCO USER
     Route: 048
     Dates: start: 20070730

REACTIONS (7)
  - ABDOMINAL DISCOMFORT [None]
  - HYPERHIDROSIS [None]
  - INSOMNIA [None]
  - MALAISE [None]
  - MIGRAINE [None]
  - MUSCULOSKELETAL PAIN [None]
  - VOMITING [None]
